FAERS Safety Report 5417661-0 (Version None)
Quarter: 2007Q3

REPORT INFORMATION
  Report Type: 
  Country: None (occurrence: None)
  Receive Date: 20070718
  Receipt Date: 20061128
  Transmission Date: 20080115
  Serious: Yes (Hospitalization)
  Sender: FDA-Public Use
  Company Number: 2006150183

PATIENT
  Sex: Female

DRUGS (3)
  1. CELEBREX [Suspect]
     Dates: start: 20020301, end: 20050101
  2. BEXTRA [Suspect]
     Dates: start: 20040801, end: 20041001
  3. VIOXX [Suspect]
     Dosage: ORAL
     Route: 048
     Dates: start: 20040601, end: 20040801

REACTIONS (1)
  - DEEP VEIN THROMBOSIS [None]
